FAERS Safety Report 14439999 (Version 1)
Quarter: 2018Q1

REPORT INFORMATION
  Report Type: Spontaneous
  Country: PT (occurrence: PT)
  Receive Date: 20180125
  Receipt Date: 20180125
  Transmission Date: 20180509
  Serious: Yes (Hospitalization, Other)
  Sender: FDA-Public Use
  Company Number: PT-MYLANLABS-2018M1003768

PATIENT
  Age: 70 Year
  Sex: Male

DRUGS (13)
  1. SIMVASTATIN. [Suspect]
     Active Substance: SIMVASTATIN
     Indication: DYSLIPIDAEMIA
     Dosage: 20 MG, QD
  2. PREDNISOLONE. [Concomitant]
     Active Substance: PREDNISOLONE
     Indication: PRODUCT USED FOR UNKNOWN INDICATION
     Dosage: 1 MG/KG, QD
  3. OMEPRAZOLE. [Concomitant]
     Active Substance: OMEPRAZOLE
     Indication: PRODUCT USED FOR UNKNOWN INDICATION
     Dosage: 20 MG, QD
  4. PHENYTOIN. [Suspect]
     Active Substance: PHENYTOIN
     Indication: MENINGIOMA
     Dosage: 300 MG, QD
     Dates: start: 2014, end: 2014
  5. PHENYTOIN. [Suspect]
     Active Substance: PHENYTOIN
     Indication: MENINGIOMA SURGERY
     Dosage: 100 MG, 8HOUR
     Dates: start: 20140218, end: 20140227
  6. AMOXICILLIN. [Suspect]
     Active Substance: AMOXICILLIN
     Indication: PRODUCTIVE COUGH
     Dosage: UNK
  7. LORAZEPAM. [Concomitant]
     Active Substance: LORAZEPAM
     Indication: PRODUCT USED FOR UNKNOWN INDICATION
     Dosage: 2.5 MG, QD
  8. HYDROXYZINE [Concomitant]
     Active Substance: HYDROXYZINE HYDROCHLORIDE
     Indication: PRURITUS ALLERGIC
  9. HYDROCHLORTHIAZID [Concomitant]
     Active Substance: HYDROCHLOROTHIAZIDE
     Indication: HYPERTENSION
     Dosage: 12.5 MG, QD
  10. GADOLINIUM [Concomitant]
     Active Substance: GADOLINIUM
     Indication: NUCLEAR MAGNETIC RESONANCE IMAGING
  11. VALSARTAN+HYDROCHLOROTHIAZIDE AUROBINDO [Concomitant]
     Indication: HYPERTENSION
     Dosage: 80 MG, QD
  12. DEFLAZACORT [Concomitant]
     Active Substance: DEFLAZACORT
     Indication: PRURITUS ALLERGIC
  13. CONTRAST MEDIA [Suspect]
     Active Substance: UNSPECIFIED INGREDIENT
     Indication: COMPUTERISED TOMOGRAM HEAD
     Dosage: UNK

REACTIONS (2)
  - Drug reaction with eosinophilia and systemic symptoms [Recovered/Resolved]
  - Drug hypersensitivity [Recovered/Resolved]

NARRATIVE: CASE EVENT DATE: 2014
